FAERS Safety Report 13815590 (Version 1)
Quarter: 2017Q3

REPORT INFORMATION
  Report Type: Other
  Country: GB (occurrence: GB)
  Receive Date: 20170731
  Receipt Date: 20170731
  Transmission Date: 20171127
  Serious: Yes (Other)
  Sender: FDA-Public Use
  Company Number: GB-COVIS PHARMA B.V.-2017COV00091

PATIENT
  Age: 73 Year
  Sex: Male

DRUGS (7)
  1. GINKGO BILOBA [Concomitant]
     Active Substance: GINKGO
  2. OMEPRAZOLE MAGNESIUM. [Suspect]
     Active Substance: OMEPRAZOLE MAGNESIUM
     Dosage: 10 MG, 1X/DAY
     Route: 048
  3. TAMSULOSIN HYDROCHLORIDE. [Suspect]
     Active Substance: TAMSULOSIN HYDROCHLORIDE
     Indication: PAIN
     Dosage: UNK
     Dates: start: 20150909, end: 20151019
  4. GINSENG [Concomitant]
     Active Substance: ASIAN GINSENG
  5. GLUCOSAMINE [Concomitant]
     Active Substance: GLUCOSAMINE
  6. PROSTAFORM PLUS [Concomitant]
  7. UNSPECIFIED GENERAL NUTRIENTS [Concomitant]

REACTIONS (6)
  - Vision blurred [Unknown]
  - Eosinophilia [Unknown]
  - Dysuria [Recovering/Resolving]
  - Macular hole [Unknown]
  - Macular degeneration [Unknown]
  - Macular detachment [Unknown]

NARRATIVE: CASE EVENT DATE: 201508
